FAERS Safety Report 9196319 (Version 1)
Quarter: 2013Q1

REPORT INFORMATION
  Report Type: Spontaneous
  Country: DE (occurrence: DE)
  Receive Date: 20130328
  Receipt Date: 20130328
  Transmission Date: 20140127
  Serious: Yes (Other)
  Sender: FDA-Public Use
  Company Number: DE-ASTELLAS-2013EU002868

PATIENT
  Sex: 0

DRUGS (1)
  1. TACROLIMUS SYSTEMIC [Suspect]
     Dosage: 1 MG, BID
     Route: 065

REACTIONS (1)
  - Ventricular tachycardia [Unknown]
